FAERS Safety Report 15906659 (Version 1)
Quarter: 2019Q1

REPORT INFORMATION
  Report Type: Spontaneous
  Country: JP (occurrence: JP)
  Receive Date: 20190204
  Receipt Date: 20190204
  Transmission Date: 20190417
  Serious: Yes (Hospitalization, Other)
  Sender: FDA-Public Use
  Company Number: JP-CELGENEUS-JPN-20190105479

PATIENT
  Sex: Male

DRUGS (2)
  1. OTEZLA [Suspect]
     Active Substance: APREMILAST
     Indication: PSORIASIS
     Dosage: UNKNOWN
     Route: 048
  2. TIGASON [Concomitant]
     Active Substance: ETRETINATE
     Indication: PSORIASIS
     Dosage: UNKNOWN
     Route: 048

REACTIONS (2)
  - Thyroid disorder [Unknown]
  - Ill-defined disorder [Unknown]
